FAERS Safety Report 8307204-6 (Version None)
Quarter: 2012Q2

REPORT INFORMATION
  Report Type: 
  Country: None (occurrence: None)
  Receive Date: 20120424
  Receipt Date: 20120419
  Transmission Date: 20120825
  Serious: No
  Sender: FDA-Public Use
  Company Number: US-PFIZER INC-2012098255

PATIENT
  Sex: Female

DRUGS (5)
  1. LORATADINE AND PSEUDOEPHEDRINE SULFATE [Suspect]
     Indication: HYPERSENSITIVITY
     Dosage: UNK
  2. CLARITIN [Suspect]
     Indication: HYPERSENSITIVITY
     Dosage: UNK
  3. ALAVERT [Suspect]
     Indication: HYPERSENSITIVITY
     Dosage: UNK
     Route: 048
  4. ALLEGRA [Suspect]
     Indication: HYPERSENSITIVITY
     Dosage: UNK
  5. ZYRTEC [Suspect]
     Indication: HYPERSENSITIVITY
     Dosage: UNK

REACTIONS (4)
  - DRUG INEFFECTIVE [None]
  - VOMITING [None]
  - ANGER [None]
  - ABDOMINAL DISCOMFORT [None]
